FAERS Safety Report 4552997-7 (Version None)
Quarter: 2005Q1

REPORT INFORMATION
  Report Type: 
  Country: None (occurrence: None)
  Receive Date: 20050113
  Receipt Date: 20050104
  Transmission Date: 20050727
  Serious: Yes (Life-Threatening, Hospitalization)
  Sender: FDA-Public Use
  Company Number: 200410588BFR

PATIENT
  Age: 78 Year
  Sex: Male

DRUGS (7)
  1. MOXIFLOXACIN HYDROCHLORIDE [Suspect]
     Indication: LUNG INFECTION
     Dosage: 400 MG, TOTAL DAILY, ORAL
     Route: 048
     Dates: start: 20040823, end: 20040828
  2. CORDARONE [Suspect]
     Indication: ARRHYTHMIA
     Dosage: 1000 MG, TOTAL DAILY, ORAL; 200 MG, TOTAL DAILY, ORAL
     Route: 048
     Dates: end: 20040828
  3. CORDARONE [Suspect]
     Indication: ARRHYTHMIA
     Dosage: 1000 MG, TOTAL DAILY, ORAL; 200 MG, TOTAL DAILY, ORAL
     Route: 048
     Dates: start: 20040909
  4. TADENAN [Concomitant]
  5. TRIATEC [Concomitant]
  6. KARDEGIC [Concomitant]
  7. PREVISCAN [Concomitant]

REACTIONS (10)
  - ARRHYTHMIA [None]
  - ATRIAL HYPERTROPHY [None]
  - CARDIAC FAILURE [None]
  - CONDITION AGGRAVATED [None]
  - DRUG INTERACTION [None]
  - HAEMOPTYSIS [None]
  - MYOCARDIAL INFARCTION [None]
  - PULMONARY OEDEMA [None]
  - RENAL FAILURE [None]
  - TORSADE DE POINTES [None]
